FAERS Safety Report 17525625 (Version 1)
Quarter: 2020Q1

REPORT INFORMATION
  Report Type: Spontaneous
  Country: US (occurrence: US)
  Receive Date: 20200311
  Receipt Date: 20200311
  Transmission Date: 20200409
  Serious: No
  Sender: FDA-Public Use
  Company Number: None

PATIENT
  Age: 65 Year
  Sex: Female
  Weight: 64.35 kg

DRUGS (6)
  1. NP TYROID [Concomitant]
  2. OMEPRAZOLE DR 20 MG CAPSULES [Suspect]
     Active Substance: OMEPRAZOLE
     Indication: GASTROOESOPHAGEAL REFLUX DISEASE
     Dosage: ?          QUANTITY:1 CAPSULE(S);?
     Route: 048
     Dates: start: 20191113, end: 20200301
  3. CLIMARA [Concomitant]
     Active Substance: ESTRADIOL
  4. MULTI VITAMIN [Concomitant]
     Active Substance: VITAMINS
  5. MAGNESIUM [Concomitant]
     Active Substance: MAGNESIUM
  6. BUPROPION SR [Concomitant]
     Active Substance: BUPROPION HYDROCHLORIDE

REACTIONS (3)
  - Tinnitus [None]
  - Therapeutic product effect decreased [None]
  - Product formulation issue [None]

NARRATIVE: CASE EVENT DATE: 20200214
